FAERS Safety Report 11070120 (Version 1)
Quarter: 2015Q2

REPORT INFORMATION
  Report Type: Spontaneous
  Country: JP (occurrence: JP)
  Receive Date: 20150427
  Receipt Date: 20150427
  Transmission Date: 20150821
  Serious: Yes (Other)
  Sender: FDA-Public Use
  Company Number: JP-UCBSA-2015008377

PATIENT
  Age: 45 Year
  Sex: Female

DRUGS (1)
  1. XYZAL [Suspect]
     Active Substance: LEVOCETIRIZINE DIHYDROCHLORIDE
     Indication: SEASONAL ALLERGY
     Dosage: 2.5 MG, ONCE DAILY (QD)
     Route: 048
     Dates: start: 20150304, end: 20150304

REACTIONS (10)
  - Pharyngeal oedema [Recovered/Resolved]
  - Anaphylactic reaction [Recovered/Resolved]
  - Laryngeal dyspnoea [Recovered/Resolved]
  - Oropharyngeal discomfort [Recovered/Resolved]
  - Cough [Recovered/Resolved]
  - Pruritus [Recovered/Resolved]
  - Urticaria [Recovered/Resolved]
  - Face oedema [Unknown]
  - Throat irritation [Recovered/Resolved]
  - Laryngeal oedema [Unknown]

NARRATIVE: CASE EVENT DATE: 2015
